FAERS Safety Report 14251633 (Version 1)
Quarter: 2017Q4

REPORT INFORMATION
  Report Type: Spontaneous
  Country: US (occurrence: US)
  Receive Date: 20171205
  Receipt Date: 20171205
  Transmission Date: 20180321
  Serious: Yes (Death, Hospitalization)
  Sender: FDA-Public Use
  Company Number: US-ASTRAZENECA-2017SF22201

PATIENT
  Age: 44 Year
  Sex: Female

DRUGS (7)
  1. OMEPRAZOLE. [Suspect]
     Active Substance: OMEPRAZOLE
     Route: 048
  2. AMITRIPTYLINE [Suspect]
     Active Substance: AMITRIPTYLINE
     Route: 048
  3. ALCOHOL. [Suspect]
     Active Substance: ALCOHOL
     Route: 048
  4. ESZOPICLONE. [Suspect]
     Active Substance: ESZOPICLONE
     Route: 048
  5. VALPROIC ACID. [Suspect]
     Active Substance: VALPROIC ACID
     Route: 048
  6. MORPHINE [Suspect]
     Active Substance: MORPHINE
     Route: 048
  7. METHADONE [Suspect]
     Active Substance: METHADONE HYDROCHLORIDE
     Route: 048

REACTIONS (4)
  - Toxicity to various agents [Fatal]
  - Respiratory arrest [Unknown]
  - Cardiac arrest [Unknown]
  - Drug abuse [Unknown]
